FAERS Safety Report 23815794 (Version 1)
Quarter: 2024Q2

REPORT INFORMATION
  Report Type: Report from Study
  Country: US (occurrence: None)
  Receive Date: 20240503
  Receipt Date: 20240503
  Transmission Date: 20240715
  Serious: Yes (Life-Threatening, Hospitalization)
  Sender: FDA-Public Use
  Company Number: 2020SE43930

PATIENT
  Age: 24568 Day
  Sex: Female

DRUGS (5)
  1. ACALABRUTINIB [Suspect]
     Active Substance: ACALABRUTINIB
     Indication: Mantle cell lymphoma
     Route: 048
     Dates: start: 20191008, end: 20191202
  2. VENETOCLAX [Concomitant]
     Active Substance: VENETOCLAX
     Indication: Mantle cell lymphoma
     Route: 065
     Dates: start: 20191105, end: 20191113
  3. VENETOCLAX [Concomitant]
     Active Substance: VENETOCLAX
     Indication: Mantle cell lymphoma
     Route: 065
     Dates: start: 20191114, end: 20191118
  4. VENETOCLAX [Concomitant]
     Active Substance: VENETOCLAX
     Indication: Mantle cell lymphoma
     Route: 065
     Dates: start: 20191119, end: 20191125
  5. VENETOCLAX [Concomitant]
     Active Substance: VENETOCLAX
     Indication: Mantle cell lymphoma
     Dates: start: 20191126, end: 20191128

REACTIONS (1)
  - Streptococcal sepsis [Recovered/Resolved]

NARRATIVE: CASE EVENT DATE: 20191128
